FAERS Safety Report 8365827-2 (Version None)
Quarter: 2012Q2

REPORT INFORMATION
  Report Type: 
  Country: None (occurrence: None)
  Receive Date: 20120515
  Receipt Date: 20120508
  Transmission Date: 20120825
  Serious: Yes (Death)
  Sender: FDA-Public Use
  Company Number: CIP-2012-00137

PATIENT

DRUGS (3)
  1. CARBOPLATIN [Suspect]
     Indication: NON-SMALL CELL LUNG CANCER
     Dosage: AREA UNDER THE CONCENTRATION TIME CURVE=5 (DAY 1 OF 21 DAY CYCLE),INTRAVENOUS
     Route: 042
  2. BEVACIZUMAB (BEVACIZUMAB) [Suspect]
     Indication: NON-SMALL CELL LUNG CANCER
     Dosage: 15 MG/KG (DAY 1 OF 21 DAY CYCLE),INTRAVENOUS
     Route: 042
  3. PEMETREXED [Suspect]
     Indication: NON-SMALL CELL LUNG CANCER
     Dosage: 500 MG/M2 (DAY 1 OF 21 DAY CYCLE),INTRAVENOUS
     Route: 042

REACTIONS (1)
  - PULMONARY HAEMORRHAGE [None]
